FAERS Safety Report 8555551-5 (Version None)
Quarter: 2012Q3

REPORT INFORMATION
  Report Type: 
  Country: None (occurrence: None)
  Receive Date: 20120731
  Receipt Date: 20110721
  Transmission Date: 20120928
  Serious: No
  Sender: FDA-Public Use
  Company Number: US-ASTRAZENECA-2010SE39274

PATIENT
  Age: 40 Year
  Sex: Female
  Weight: 113.4 kg

DRUGS (4)
  1. SEROQUEL [Suspect]
     Route: 048
     Dates: start: 20000101, end: 20100101
  2. SEROQUEL [Suspect]
     Indication: BIPOLAR DISORDER
     Route: 048
     Dates: start: 20000101, end: 20100101
  3. SEROQUEL [Suspect]
     Indication: PSYCHOTIC DISORDER
     Route: 048
     Dates: start: 20000101, end: 20100101
  4. SEROQUEL [Suspect]
     Route: 048
     Dates: start: 20000101, end: 20100101

REACTIONS (6)
  - TREMOR [None]
  - MALAISE [None]
  - DRUG DOSE OMISSION [None]
  - INSOMNIA [None]
  - EMOTIONAL DISORDER [None]
  - AGITATION [None]
